FAERS Safety Report 9460202 (Version 1)
Quarter: 2013Q3

REPORT INFORMATION
  Report Type: Spontaneous
  Country: US (occurrence: US)
  Receive Date: 20130815
  Receipt Date: 20130815
  Transmission Date: 20140515
  Serious: Yes (Other)
  Sender: FDA-Public Use
  Company Number: US-TEVA-426169USA

PATIENT
  Age: 41 Year
  Sex: Female
  Weight: 63.11 kg

DRUGS (4)
  1. PARAGARD 380A [Suspect]
     Indication: CONTRACEPTION
     Route: 015
     Dates: start: 20130711
  2. FLOVENT [Concomitant]
  3. PROVENTIL [Concomitant]
  4. LORAZEPAM [Concomitant]

REACTIONS (1)
  - Device dislocation [Not Recovered/Not Resolved]
